FAERS Safety Report 23781277 (Version 1)
Quarter: 2024Q2

REPORT INFORMATION
  Report Type: Spontaneous
  Country: CN (occurrence: None)
  Receive Date: 20240425
  Receipt Date: 20240425
  Transmission Date: 20240716
  Serious: Yes (Hospitalization)
  Sender: FDA-Public Use
  Company Number: CN-ROCHE-3548529

PATIENT
  Age: 61 Year
  Sex: Female

DRUGS (3)
  1. AVASTIN [Suspect]
     Active Substance: BEVACIZUMAB
     Indication: Ovarian cancer
     Route: 041
     Dates: start: 20240318, end: 20240318
  2. APATINIB [Suspect]
     Active Substance: APATINIB
     Indication: Ovarian cancer
     Route: 048
     Dates: start: 20240318, end: 20240401
  3. ETOPOSIDE [Suspect]
     Active Substance: ETOPOSIDE
     Indication: Ovarian cancer
     Route: 048
     Dates: start: 20240318, end: 20240327

REACTIONS (3)
  - Myelosuppression [Not Recovered/Not Resolved]
  - Glassy eyes [Unknown]
  - Slow response to stimuli [Unknown]

NARRATIVE: CASE EVENT DATE: 20240402
